FAERS Safety Report 23423927 (Version 1)
Quarter: 2024Q1

REPORT INFORMATION
  Report Type: Report from Study
  Country: ZA (occurrence: ZA)
  Receive Date: 20240119
  Receipt Date: 20240119
  Transmission Date: 20240410
  Serious: Yes (Death)
  Sender: FDA-Public Use
  Company Number: ZA-ABBVIE-5595989

PATIENT
  Age: 83 Year
  Sex: Female

DRUGS (2)
  1. BOTOX [Suspect]
     Active Substance: ONABOTULINUMTOXINA
     Indication: Muscle spasticity
     Dosage: TIME INTERVAL: AS NECESSARY: FORM STRENGTH: 100 UNIT
     Route: 065
     Dates: start: 20221201, end: 20221201
  2. BOTOX [Suspect]
     Active Substance: ONABOTULINUMTOXINA
     Indication: Muscle spasticity
     Dosage: TIME INTERVAL: AS NECESSARY: FORM STRENGTH: 100 UNIT
     Route: 065
     Dates: start: 20230810, end: 20230810

REACTIONS (1)
  - Death [Fatal]

NARRATIVE: CASE EVENT DATE: 20240116
